FAERS Safety Report 9729107 (Version 2)
Quarter: 2013Q4

REPORT INFORMATION
  Report Type: Spontaneous
  Country: ES (occurrence: ES)
  Receive Date: 20131204
  Receipt Date: 20131223
  Transmission Date: 20140711
  Serious: Yes (Other)
  Sender: FDA-Public Use
  Company Number: ES-JNJFOC-20131117874

PATIENT
  Age: 62 Year
  Sex: Male

DRUGS (4)
  1. ZYTIGA [Suspect]
     Indication: PROSTATE CANCER
     Route: 048
     Dates: start: 201112
  2. PREDNISONE [Suspect]
     Indication: PROSTATE CANCER
     Route: 065
     Dates: start: 201112
  3. GEMFIBROZIL [Concomitant]
     Route: 065
  4. SECALIP [Concomitant]
     Indication: DYSLIPIDAEMIA
     Route: 065

REACTIONS (2)
  - Metabolic syndrome [Recovering/Resolving]
  - Deep vein thrombosis [Recovered/Resolved]
